FAERS Safety Report 23866736 (Version 1)
Quarter: 2024Q2

REPORT INFORMATION
  Report Type: Report from Study
  Country: US (occurrence: None)
  Receive Date: 20240517
  Receipt Date: 20240517
  Transmission Date: 20240715
  Serious: Yes (Hospitalization)
  Sender: FDA-Public Use
  Company Number: 2024A110878

PATIENT
  Sex: Female

DRUGS (1)
  1. LYNPARZA [Suspect]
     Active Substance: OLAPARIB
     Indication: Breast cancer female
     Route: 048

REACTIONS (9)
  - Gastrointestinal obstruction [Unknown]
  - Gingival bleeding [Unknown]
  - Stomatitis [Unknown]
  - Headache [Unknown]
  - Blood pressure abnormal [Unknown]
  - Nausea [Unknown]
  - Abdominal pain [Unknown]
  - Diverticulum intestinal [Unknown]
  - Product dose omission issue [Unknown]
